FAERS Safety Report 9344635 (Version 1)
Quarter: 2013Q2

REPORT INFORMATION
  Report Type: Report from Study
  Country: CA (occurrence: CA)
  Receive Date: 20130612
  Receipt Date: 20130612
  Transmission Date: 20140414
  Serious: Yes (Hospitalization, Other)
  Sender: FDA-Public Use
  Company Number: CA-ABBOTT-13P-028-1103672-00

PATIENT
  Age: 33 Year
  Sex: Female

DRUGS (2)
  1. HUMIRA [Suspect]
     Indication: CROHN^S DISEASE
     Route: 058
     Dates: start: 20090902, end: 201304
  2. HUMIRA [Suspect]
     Route: 058
     Dates: start: 201305, end: 20130609

REACTIONS (1)
  - Abortion spontaneous [Unknown]
